FAERS Safety Report 9161450 (Version 2)
Quarter: 2013Q2

REPORT INFORMATION
  Report Type: Spontaneous
  Country: US (occurrence: US)
  Receive Date: 20130313
  Receipt Date: 20130415
  Transmission Date: 20140414
  Serious: No
  Sender: FDA-Public Use
  Company Number: US-009507513-1303USA003457

PATIENT
  Age: 66 Year
  Sex: Male
  Weight: 87.53 kg

DRUGS (6)
  1. VICTRELIS [Suspect]
     Indication: HEPATITIS C
     Dosage: 800 MG, TID
     Route: 048
     Dates: start: 20130125
  2. PEGASYS [Suspect]
     Dosage: 180 MICROGRAM, QW
     Dates: start: 20121228
  3. RIBASPHERE [Suspect]
     Dosage: DAILY DOSAGE 1200MG
     Dates: start: 20121228
  4. ASPIRIN [Concomitant]
     Dosage: DAILY DOSAGE 81 MG
  5. ASCORBIC ACID [Concomitant]
     Dosage: DAILY DOSAGE 1000 MG
  6. AMLODIPINE [Concomitant]
     Dosage: DAILY DOSAGE 25 MG

REACTIONS (3)
  - White blood cell count decreased [Unknown]
  - Anaemia [Not Recovered/Not Resolved]
  - Rash [Unknown]
